FAERS Safety Report 20311484 (Version 7)
Quarter: 2022Q3

REPORT INFORMATION
  Report Type: Report from Study
  Country: DE (occurrence: None)
  Receive Date: 20220108
  Receipt Date: 20220922
  Transmission Date: 20221027
  Serious: Yes (Hospitalization)
  Sender: FDA-Public Use
  Company Number: DE-ROCHE-2993589

PATIENT
  Age: 35 Year
  Sex: Female
  Weight: 59 kg

DRUGS (23)
  1. ATEZOLIZUMAB [Suspect]
     Active Substance: ATEZOLIZUMAB
     Indication: Triple negative breast cancer
     Dosage: ON 30/NOV/2021, RECEIVED MOST RECENT DOSE OF ATEZOLIZUMAB BEFORE EVENT.
     Route: 041
     Dates: start: 20211109
  2. PACLITAXEL [Suspect]
     Active Substance: PACLITAXEL
     Indication: Triple negative breast cancer
     Dosage: ON 30/NOV/2021, RECEIVED MOST RECENT DOSE OF PACLITAXEL BEFORE EVENT.?ON 07/DEC/2021, LAST DOSE PRIO
     Route: 042
     Dates: start: 20211109
  3. CARBOPLATIN [Suspect]
     Active Substance: CARBOPLATIN
     Indication: Triple negative breast cancer
     Dosage: ON 30/NOV/2021, RECEIVED MOST RECENT DOSE OF CARBOPLATIN BEFORE EVENT.?ON 07/DEC/2021, LAST DOSE PRI
     Route: 042
     Dates: start: 20211109
  4. FILGRASTIM [Concomitant]
     Active Substance: FILGRASTIM
     Dosage: 30 MIO. UNITS AS NEEDED
     Dates: start: 20211117, end: 20220317
  5. FILGRASTIM [Concomitant]
     Active Substance: FILGRASTIM
     Dates: start: 20211120
  6. FILGRASTIM [Concomitant]
     Active Substance: FILGRASTIM
     Dosage: 30 MIO. UNITS OTHER
     Dates: start: 20211125, end: 20211211
  7. PREDNISOLONE [Concomitant]
     Active Substance: PREDNISOLONE
     Dates: start: 20211123, end: 20211123
  8. PREDNISOLONE [Concomitant]
     Active Substance: PREDNISOLONE
     Dates: start: 20211109, end: 20211109
  9. CLEMASTINE [Concomitant]
     Active Substance: CLEMASTINE
     Dates: start: 20211109, end: 20211109
  10. CLEMASTINE [Concomitant]
     Active Substance: CLEMASTINE
     Dates: start: 20211123, end: 20211123
  11. DEXAMETHASONE [Concomitant]
     Active Substance: DEXAMETHASONE
     Dates: start: 20211109
  12. DEXAMETHASONE [Concomitant]
     Active Substance: DEXAMETHASONE
     Dates: start: 20211129
  13. PANTOPRAZOLE [Concomitant]
     Active Substance: PANTOPRAZOLE
     Dates: start: 20211201
  14. PANTOPRAZOLE [Concomitant]
     Active Substance: PANTOPRAZOLE
     Dates: start: 20211109
  15. PANTOPRAZOLE [Concomitant]
     Active Substance: PANTOPRAZOLE
     Dates: start: 20211116, end: 20211130
  16. APREPITANT [Concomitant]
     Active Substance: APREPITANT
     Dates: start: 20211109
  17. APREPITANT [Concomitant]
     Active Substance: APREPITANT
     Dates: start: 20211110
  18. GRANISETRONE [Concomitant]
     Dates: start: 20211109
  19. METOCLOPRAMIDE [Concomitant]
     Active Substance: METOCLOPRAMIDE
     Dosage: 10 MG AS NEEDED
     Dates: start: 20211109, end: 20220408
  20. ONDANSETRON [Concomitant]
     Active Substance: ONDANSETRON
     Dates: start: 20211109, end: 20220408
  21. THIAMINE [Concomitant]
     Active Substance: THIAMINE
     Dosage: 100 MG ONCE DAILY
     Dates: start: 20211109
  22. PYRIDOXINE [Concomitant]
     Active Substance: PYRIDOXINE
     Dosage: 100 MG ONCE DAILY
     Dates: start: 20211109
  23. CHOLECALCIFEROL [Concomitant]
     Active Substance: CHOLECALCIFEROL
     Dosage: OTHER
     Dates: start: 20211109

REACTIONS (1)
  - Pyrexia [Recovered/Resolved]

NARRATIVE: CASE EVENT DATE: 20211130
